FAERS Safety Report 8029277-0 (Version None)
Quarter: 2012Q1

REPORT INFORMATION
  Report Type: 
  Country: None (occurrence: None)
  Receive Date: 20120106
  Receipt Date: 20120105
  Transmission Date: 20120608
  Serious: Yes (Other)
  Sender: FDA-Public Use
  Company Number: US-AMGEN-USASP2011022914

PATIENT
  Age: 69 Year
  Sex: Female
  Weight: 91.156 kg

DRUGS (1)
  1. NPLATE [Suspect]
     Indication: IDIOPATHIC THROMBOCYTOPENIC PURPURA
     Dosage: 0.57 ML, QWK
     Route: 058
     Dates: start: 20100115, end: 20110307

REACTIONS (1)
  - THROMBOCYTOPENIA [None]
